FAERS Safety Report 19319217 (Version 1)
Quarter: 2021Q2

REPORT INFORMATION
  Report Type: Other
  Country: US (occurrence: US)
  Receive Date: 20210527
  Receipt Date: 20210527
  Transmission Date: 20210717
  Serious: No
  Sender: FDA-Public Use
  Company Number: US-NOVA LABORATORIES LIMITED-2112050

PATIENT
  Age: 15 Year
  Sex: Male

DRUGS (4)
  1. CYCLOPHOSPHAMIDE. [Suspect]
     Active Substance: CYCLOPHOSPHAMIDE
  2. CYTARABINE. [Suspect]
     Active Substance: CYTARABINE
  3. METHOTREXATE. [Suspect]
     Active Substance: METHOTREXATE
  4. PURIXAN [Suspect]
     Active Substance: MERCAPTOPURINE
     Indication: CHRONIC MYELOID LEUKAEMIA

REACTIONS (1)
  - Off label use [None]
